FAERS Safety Report 8041654-0 (Version None)
Quarter: 2012Q1

REPORT INFORMATION
  Report Type: 
  Country: None (occurrence: None)
  Receive Date: 20120112
  Receipt Date: 20120105
  Transmission Date: 20120608
  Serious: Yes (Other)
  Sender: FDA-Public Use
  Company Number: US-JNJFOC-20120102803

PATIENT
  Sex: Female

DRUGS (1)
  1. PRECISE EXTRA STRENGTH PAIN RELIEVING CREAM [Suspect]
     Indication: PRODUCT USED FOR UNKNOWN INDICATION
     Dosage: ^A COUPLE OF TIMES^
     Route: 061

REACTIONS (3)
  - PRODUCT QUALITY ISSUE [None]
  - APPLICATION SITE SCAR [None]
  - APPLICATION SITE BURN [None]
